FAERS Safety Report 16939793 (Version 1)
Quarter: 2019Q4

REPORT INFORMATION
  Report Type: Spontaneous
  Country: BR (occurrence: BR)
  Receive Date: 20191021
  Receipt Date: 20191021
  Transmission Date: 20200122
  Serious: Yes (Other)
  Sender: FDA-Public Use
  Company Number: BR-GLAXOSMITHKLINE-BR2019AMR186535

PATIENT
  Age: 2 Year
  Sex: Female

DRUGS (2)
  1. ZINNAT [Suspect]
     Active Substance: CEFUROXIME
     Indication: SINUSITIS
     Dosage: 6 ML, BID
  2. ZINNAT [Suspect]
     Active Substance: CEFUROXIME
     Indication: EAR INFECTION

REACTIONS (4)
  - Condition aggravated [Recovered/Resolved]
  - Diarrhoea haemorrhagic [Recovered/Resolved]
  - Drug hypersensitivity [Recovered/Resolved]
  - Extra dose administered [Unknown]
